FAERS Safety Report 8506396-3 (Version None)
Quarter: 2012Q3

REPORT INFORMATION
  Report Type: 
  Country: None (occurrence: None)
  Receive Date: 20120706
  Receipt Date: 20120706
  Transmission Date: 20120928
  Serious: Yes (Other)
  Sender: FDA-Public Use
  Company Number: None

PATIENT
  Age: 60 Year
  Sex: Female
  Weight: 68.0396 kg

DRUGS (5)
  1. VITAMIN B (VITAMIN B NOS) UNKNOWN [Concomitant]
  2. SYNTHROID [Concomitant]
  3. OMEGA VITAMIN (FISH OIL) UNKNOWN [Concomitant]
  4. LISTERINE AGENT COOL BLUE GLACIER MINT (ORAL CARE PRODUCTS) LIQUID [Suspect]
     Indication: DENTAL DISORDER PROPHYLAXIS
     Dosage: , 1 IN 1 DAY, ORAL
     Route: 048
     Dates: start: 20120323, end: 20120323
  5. CALCIUM (CALCIUM) UNKNOWN [Concomitant]

REACTIONS (4)
  - SWOLLEN TONGUE [None]
  - MALAISE [None]
  - SWELLING FACE [None]
  - PHARYNGEAL OEDEMA [None]
